FAERS Safety Report 4709002-9 (Version None)
Quarter: 2005Q3

REPORT INFORMATION
  Report Type: 
  Country: None (occurrence: None)
  Receive Date: 20050707
  Receipt Date: 20050627
  Transmission Date: 20060218
  Serious: Yes (Other)
  Sender: FDA-Public Use
  Company Number: HQWYE195516JUL04

PATIENT
  Age: 64 Year
  Sex: Female
  Weight: 128.94 kg

DRUGS (1)
  1. PREMARIN [Suspect]
     Indication: HORMONE REPLACEMENT THERAPY
     Dosage: ORAL
     Route: 048
     Dates: start: 19870101, end: 20010101

REACTIONS (10)
  - BONE SCAN ABNORMAL [None]
  - BREAST CANCER METASTATIC [None]
  - DIABETES MELLITUS [None]
  - GALLBLADDER POLYP [None]
  - LYMPHOCELE [None]
  - METASTASES TO LYMPH NODES [None]
  - PELVIC PAIN [None]
  - SCAR [None]
  - SPINAL OSTEOARTHRITIS [None]
  - VASCULAR CALCIFICATION [None]
